FAERS Safety Report 5985127-5 (Version None)
Quarter: 2008Q4

REPORT INFORMATION
  Report Type: 
  Country: None (occurrence: None)
  Receive Date: 20081203
  Receipt Date: 20081121
  Transmission Date: 20090506
  Serious: Yes (Death)
  Sender: FDA-Public Use
  Company Number: MEDI-0007543

PATIENT
  Age: 1 Month
  Sex: Male
  Weight: 3.67 kg

DRUGS (2)
  1. SYNAGIS [Suspect]
     Indication: ANTIVIRAL PROPHYLAXIS
     Dosage: 55 MG, INTRAMUSCULAR
     Route: 030
     Dates: start: 20081012, end: 20081113
  2. SYNAGIS [Suspect]
     Indication: PREMATURE BABY
     Dosage: 55 MG, INTRAMUSCULAR
     Route: 030
     Dates: start: 20081012, end: 20081113

REACTIONS (1)
  - SUDDEN INFANT DEATH SYNDROME [None]
